FAERS Safety Report 23328599 (Version 1)
Quarter: 2023Q4

REPORT INFORMATION
  Report Type: Spontaneous
  Country: US (occurrence: US)
  Receive Date: 20231221
  Receipt Date: 20231221
  Transmission Date: 20240109
  Serious: No
  Sender: FDA-Public Use
  Company Number: US-BAUSCHBL-2023BNL013212

PATIENT
  Age: 56 Year
  Sex: Female

DRUGS (1)
  1. DORZOLAMIDE HYDROCHLORIDE AND TIMOLOL MALEATE OPHTHALMIC SOLUTION [Suspect]
     Active Substance: DORZOLAMIDE HYDROCHLORIDE\TIMOLOL MALEATE
     Indication: Glaucoma
     Dosage: ONE DROP TWICE DAILY IN EACH EYE
     Route: 047

REACTIONS (3)
  - Pain [Unknown]
  - Wrong technique in product usage process [Unknown]
  - Product use complaint [Unknown]
